FAERS Safety Report 5134249-X (Version None)
Quarter: 2006Q4

REPORT INFORMATION
  Report Type: 
  Country: None (occurrence: None)
  Receive Date: 20061019
  Receipt Date: 20061006
  Transmission Date: 20070319
  Serious: Yes (Death)
  Sender: FDA-Public Use
  Company Number: A-JP2006-13149

PATIENT
  Age: 66 Year
  Sex: Female
  Weight: 57 kg

DRUGS (14)
  1. TRACLEER [Suspect]
     Indication: PULMONARY HYPERTENSION
     Dosage: 62.5 MG, BID, ORAL
     Route: 048
     Dates: start: 20060523, end: 20060610
  2. BERAPROST (BERAPROST) [Concomitant]
  3. FUROSEMIDE [Concomitant]
  4. PREDNISOLONE [Concomitant]
  5. LEVOTHYROXINE SODIUM [Concomitant]
  6. ALENDRONATE SODIUM [Concomitant]
  7. TEPRENONE (TEPRENONE) [Concomitant]
  8. MAGNESIUM OXIDE (MAGNESIUM OXIDE) [Concomitant]
  9. CLONAZEPAM [Concomitant]
  10. AMPICILLIN SODIUM (AMPICILLIN SODIUM) [Concomitant]
  11. SULBACTAM SODIUM (SULBACTAM SODIUM) [Concomitant]
  12. OXYGEN (OXYGEN) [Concomitant]
  13. METHYLPREDNISOLONE SODIUM SUCCINATE [Concomitant]
  14. DOPAMINE HCL [Concomitant]

REACTIONS (7)
  - ALANINE AMINOTRANSFERASE INCREASED [None]
  - ASPARTATE AMINOTRANSFERASE INCREASED [None]
  - BLOOD ALKALINE PHOSPHATASE INCREASED [None]
  - HEPATOSPLENOMEGALY [None]
  - LIVER DISORDER [None]
  - LYMPHOMA [None]
  - PORTAL VEIN THROMBOSIS [None]
